FAERS Safety Report 24201530 (Version 2)
Quarter: 2024Q3

REPORT INFORMATION
  Report Type: Spontaneous
  Country: CN (occurrence: CN)
  Receive Date: 20240812
  Receipt Date: 20240815
  Transmission Date: 20241017
  Serious: Yes (Hospitalization, Other)
  Sender: NOVARTIS
  Company Number: CN-002147023-NVSC2024CN163220

PATIENT
  Age: 77 Year
  Sex: Male

DRUGS (1)
  1. SACUBITRIL\VALSARTAN [Suspect]
     Active Substance: SACUBITRIL\VALSARTAN
     Indication: Hypertension
     Dosage: 100 MG, BID (MORNING, AFTERNOON)
     Route: 048
     Dates: start: 20180708, end: 20240711

REACTIONS (5)
  - Renal impairment [Recovering/Resolving]
  - Angina pectoris [Unknown]
  - Chronic kidney disease [Unknown]
  - Chest discomfort [Unknown]
  - Incorrect dose administered [Unknown]

NARRATIVE: CASE EVENT DATE: 20180708
